FAERS Safety Report 23264757 (Version 2)
Quarter: 2023Q4

REPORT INFORMATION
  Report Type: Spontaneous
  Country: US (occurrence: US)
  Receive Date: 20231206
  Receipt Date: 20231218
  Transmission Date: 20240109
  Serious: No
  Sender: FDA-Public Use
  Company Number: US-SANDOZ-SDZ2023US063169

PATIENT
  Sex: Male

DRUGS (4)
  1. BETAMETHASONE [Suspect]
     Active Substance: BETAMETHASONE\BETAMETHASONE DIPROPIONATE
     Indication: Psoriasis
     Dosage: UNK
     Route: 065
  2. HYDROCORTISONE [Suspect]
     Active Substance: HYDROCORTISONE
     Indication: Psoriasis
     Dosage: 2.5 PERCENT TWICE DAILY X 2-4 WEEKS
     Route: 065
  3. DOVONEX [Concomitant]
     Active Substance: CALCIPOTRIENE
     Indication: Psoriasis
     Dosage: UNK
     Route: 065
  4. OTEZLA [Concomitant]
     Active Substance: APREMILAST
     Indication: Product used for unknown indication
     Dosage: 30 MG TWICE DAILY
     Route: 065
     Dates: start: 202104

REACTIONS (2)
  - Back pain [Unknown]
  - Drug ineffective [Unknown]
